FAERS Safety Report 10050281 (Version 1)
Quarter: 2014Q1

REPORT INFORMATION
  Report Type: Spontaneous
  Country: US (occurrence: None)
  Receive Date: 20140331
  Receipt Date: 20140331
  Transmission Date: 20141002
  Serious: Yes (Other)
  Sender: FDA-Public Use
  Company Number: None

PATIENT
  Age: 50 Year
  Sex: Female
  Weight: 79.38 kg

DRUGS (1)
  1. CIPROFLOXACIN [Suspect]
     Indication: POUCHITIS
     Dosage: 1 PILL  ONCE DAILY  TAKEN BY MOUTH?APPROXIMATELY 10 YEARS
     Route: 048

REACTIONS (6)
  - Paraesthesia [None]
  - Hypoaesthesia [None]
  - Tendon disorder [None]
  - Retinal tear [None]
  - Deafness [None]
  - Gait disturbance [None]
